FAERS Safety Report 11793867 (Version 1)
Quarter: 2015Q4

REPORT INFORMATION
  Report Type: Spontaneous
  Country: US (occurrence: None)
  Receive Date: 20151201
  Receipt Date: 20151201
  Transmission Date: 20160305
  Serious: Yes (Disabling, Other)
  Sender: FDA-Public Use
  Company Number: None

PATIENT
  Age: 24 Year
  Sex: Female
  Weight: 54.43 kg

DRUGS (1)
  1. SEPTOCAINE [Suspect]
     Active Substance: ARTICAINE HYDROCHLORIDE\EPINEPHRINE BITARTRATE
     Indication: TOOTH DISORDER
     Dosage: 3 CAPSULES 4%
     Dates: start: 20150204, end: 20150204

REACTIONS (10)
  - Blindness unilateral [None]
  - Confusional state [None]
  - Impaired driving ability [None]
  - VIIth nerve paralysis [None]
  - Impaired work ability [None]
  - Visual acuity reduced [None]
  - Eye movement disorder [None]
  - Blindness transient [None]
  - Eye disorder [None]
  - Dizziness [None]

NARRATIVE: CASE EVENT DATE: 20150204
